FAERS Safety Report 12689958 (Version 9)
Quarter: 2019Q4

REPORT INFORMATION
  Report Type: Report from Study
  Country: BE (occurrence: BE)
  Receive Date: 20160826
  Receipt Date: 20191202
  Transmission Date: 20200122
  Serious: Yes (Hospitalization)
  Sender: FDA-Public Use
  Company Number: BE-SA-2015SA222655

PATIENT
  Age: 37 Year
  Sex: Female
  Weight: 54 kg

DRUGS (21)
  1. MESTINON [Concomitant]
     Active Substance: PYRIDOSTIGMINE BROMIDE
     Indication: PROPHYLAXIS
     Dosage: 30 MG,QD
     Route: 048
     Dates: start: 20151012
  2. ASAFLOW [Concomitant]
     Active Substance: ASPIRIN
     Indication: PROPHYLAXIS
     Dosage: 80 MG,QD
     Route: 048
     Dates: start: 2015, end: 20151214
  3. SOLU-MEDROL [Concomitant]
     Active Substance: METHYLPREDNISOLONE SODIUM SUCCINATE
     Indication: PROPHYLAXIS
     Dosage: 500 MG,QD
     Route: 042
     Dates: start: 20151214, end: 20151214
  4. SOLU-MEDROL [Concomitant]
     Active Substance: METHYLPREDNISOLONE SODIUM SUCCINATE
     Dosage: 500 MG,QD
     Route: 042
     Dates: start: 20151217, end: 20151217
  5. SOLU-MEDROL [Concomitant]
     Active Substance: METHYLPREDNISOLONE SODIUM SUCCINATE
     Dosage: 125 MG,QD
     Route: 042
     Dates: start: 20151216, end: 20151216
  6. SOLU-MEDROL [Concomitant]
     Active Substance: METHYLPREDNISOLONE SODIUM SUCCINATE
     Dosage: 125 MG,QD
     Route: 042
     Dates: start: 20151218, end: 20151218
  7. ZANTAC [Concomitant]
     Active Substance: RANITIDINE HYDROCHLORIDE
     Indication: PROPHYLAXIS
     Dosage: 150 MG,QD
     Route: 048
     Dates: start: 20151214, end: 20151221
  8. MAGNESIUM SULFATE. [Concomitant]
     Active Substance: MAGNESIUM SULFATE
     Indication: PROPHYLAXIS
     Dosage: 2 G,QD
     Route: 042
     Dates: start: 20151214, end: 20151219
  9. ERGOCALCIFEROL. [Concomitant]
     Active Substance: ERGOCALCIFEROL
     Indication: VITAMIN D DECREASED
  10. TRAZODONE [Concomitant]
     Active Substance: TRAZODONE HYDROCHLORIDE
     Indication: MULTIPLE SCLEROSIS
     Dosage: 100 MG,QD
     Route: 048
     Dates: start: 20160415
  11. ALEMTUZUMAB [Suspect]
     Active Substance: ALEMTUZUMAB
     Indication: RELAPSING MULTIPLE SCLEROSIS
     Dosage: 12 MG,QD
     Route: 041
     Dates: start: 20151214, end: 20151218
  12. TAMSULOSIN [Concomitant]
     Active Substance: TAMSULOSIN
     Indication: NEUROGENIC BLADDER
  13. OMEPRAZOLE. [Concomitant]
     Active Substance: OMEPRAZOLE
     Indication: PROPHYLAXIS
     Dosage: 20 MG,QD
     Route: 048
     Dates: start: 20151214, end: 20151221
  14. ACICLOVIR [Concomitant]
     Active Substance: ACYCLOVIR
     Indication: PROPHYLAXIS
     Dosage: 400 MG,QD
     Route: 048
     Dates: start: 20151214, end: 201601
  15. PARACETAMOL [Concomitant]
     Active Substance: ACETAMINOPHEN
     Dosage: 1 G,QD
     Route: 042
     Dates: start: 20151218, end: 20151218
  16. TAMSULOSIN [Concomitant]
     Active Substance: TAMSULOSIN
     Indication: PROPHYLAXIS
     Dosage: .4 MG,QD
     Route: 048
     Dates: start: 20151012
  17. SOLU-MEDROL [Concomitant]
     Active Substance: METHYLPREDNISOLONE SODIUM SUCCINATE
     Dosage: 1 G,QD
     Route: 042
     Dates: start: 20160502, end: 20160506
  18. KCL [Concomitant]
     Active Substance: POTASSIUM CHLORIDE
     Indication: PROPHYLAXIS
     Dosage: 20 MEQ,QD
     Route: 042
     Dates: start: 20151214, end: 20151219
  19. ERGOCALCIFEROL. [Concomitant]
     Active Substance: ERGOCALCIFEROL
     Indication: PROPHYLAXIS
     Dosage: 25 UG,QD
     Route: 048
     Dates: start: 20150418
  20. CETIRIZINE [Concomitant]
     Active Substance: CETIRIZINE HYDROCHLORIDE
     Indication: PROPHYLAXIS
     Dosage: 10 MG,QD
     Route: 048
     Dates: start: 20151214, end: 20151221
  21. SOLU-MEDROL [Concomitant]
     Active Substance: METHYLPREDNISOLONE SODIUM SUCCINATE
     Indication: MULTIPLE SCLEROSIS
     Dosage: 250 MG,QD
     Route: 042
     Dates: start: 20151215, end: 20151215

REACTIONS (9)
  - Urosepsis [Recovered/Resolved]
  - Rash [Recovered/Resolved]
  - Diarrhoea [Recovered/Resolved]
  - Nasal congestion [Recovered/Resolved]
  - Hypersensitivity [Recovered/Resolved]
  - Feeling cold [Recovered/Resolved]
  - Metrorrhagia [Recovered/Resolved]
  - Headache [Recovered/Resolved]
  - Tachycardia [Not Recovered/Not Resolved]

NARRATIVE: CASE EVENT DATE: 20151214
